FAERS Safety Report 14843846 (Version 3)
Quarter: 2018Q2

REPORT INFORMATION
  Report Type: Spontaneous
  Country: US (occurrence: US)
  Receive Date: 20180503
  Receipt Date: 20180518
  Transmission Date: 20180711
  Serious: Yes (Hospitalization)
  Sender: FDA-Public Use
  Company Number: US-ACTELION-A-NJ2018-171559

PATIENT
  Age: 70 Year
  Sex: Female
  Weight: 82.54 kg

DRUGS (2)
  1. EPOPROSTENOL TEVA [Concomitant]
  2. VELETRI [Suspect]
     Active Substance: EPOPROSTENOL
     Indication: PULMONARY HYPERTENSION
     Dosage: 38 NG/KG, PER MIN
     Route: 042

REACTIONS (2)
  - Anaemia [Unknown]
  - Gastric polyps [Unknown]
